FAERS Safety Report 24616307 (Version 7)
Quarter: 2024Q4

REPORT INFORMATION
  Report Type: Report from Study
  Country: US (occurrence: US)
  Receive Date: 20241114
  Receipt Date: 20241212
  Transmission Date: 20250115
  Serious: Yes (Life-Threatening, Other)
  Sender: ASTELLAS
  Company Number: US-ASTELLAS-2024-AER-018228

PATIENT
  Age: 52 Year
  Sex: Male

DRUGS (2)
  1. ISAVUCONAZOLE [Suspect]
     Active Substance: ISAVUCONAZOLE
     Indication: Fungal infection
     Route: 048
     Dates: start: 20241111, end: 20241112
  2. ISAVUCONAZOLE [Suspect]
     Active Substance: ISAVUCONAZOLE
     Indication: Mucormycosis
     Route: 048
     Dates: start: 202411

REACTIONS (12)
  - Renal failure [Not Recovered/Not Resolved]
  - Loss of consciousness [Unknown]
  - Burning sensation [Unknown]
  - Hepatic pain [Unknown]
  - Dyspnoea [Unknown]
  - Fall [Unknown]
  - Renal pain [Unknown]
  - Dehydration [Not Recovered/Not Resolved]
  - Feeling abnormal [Not Recovered/Not Resolved]
  - Drug ineffective [Unknown]
  - Underdose [Unknown]
  - Off label use [Unknown]

NARRATIVE: CASE EVENT DATE: 20241111
